FAERS Safety Report 11516523 (Version 1)
Quarter: 2015Q3

REPORT INFORMATION
  Report Type: Spontaneous
  Country: US (occurrence: None)
  Receive Date: 20150916
  Receipt Date: 20150916
  Transmission Date: 20151125
  Serious: No
  Sender: FDA-Public Use
  Company Number: None

PATIENT
  Sex: Male

DRUGS (5)
  1. PULMOZYME [Suspect]
     Active Substance: DORNASE ALFA
     Indication: CYSTIC FIBROSIS
     Dosage: 2.5MG QD NEB
     Dates: start: 20140127
  2. GABAPENTIN. [Concomitant]
     Active Substance: GABAPENTIN
  3. SODIUM CHL [Concomitant]
  4. TOBI PODHALER [Suspect]
     Active Substance: TOBRAMYCIN
     Dosage: 112 MG BID INL
     Dates: start: 20130802
  5. AQUADEKS [Concomitant]

REACTIONS (1)
  - Lung transplant [None]
